FAERS Safety Report 9124672 (Version 2)
Quarter: 2013Q2

REPORT INFORMATION
  Report Type: Spontaneous
  Country: GR (occurrence: GR)
  Receive Date: 20130227
  Receipt Date: 20130408
  Transmission Date: 20140414
  Serious: Yes (Disabling, Other)
  Sender: FDA-Public Use
  Company Number: PHHY2013GR018725

PATIENT
  Age: 33 Year
  Sex: Male
  Weight: 36.28 kg

DRUGS (4)
  1. GILENYA [Suspect]
     Indication: MULTIPLE SCLEROSIS
     Route: 048
     Dates: start: 20121115, end: 20130125
  2. NEURONTIN [Concomitant]
  3. IDEOS [Concomitant]
  4. FILICINE [Concomitant]

REACTIONS (1)
  - Blindness [Not Recovered/Not Resolved]
